FAERS Safety Report 26127364 (Version 1)
Quarter: 2025Q4

REPORT INFORMATION
  Report Type: Spontaneous
  Country: US (occurrence: US)
  Receive Date: 20251205
  Receipt Date: 20251205
  Transmission Date: 20260117
  Serious: Yes (Hospitalization, Other)
  Sender: NOVO NORDISK
  Company Number: US-NOVOPROD-1577463

PATIENT
  Age: 67 Year
  Sex: Male

DRUGS (2)
  1. NOVOLOG [Suspect]
     Active Substance: INSULIN ASPART
     Indication: Type 2 diabetes mellitus
     Dosage: DOSE IS SLIDING SCALE 15  BEFORE MEALS, AND IF OVER 150: IF MORE THAN 50 TAKE AN ADDITIONAL DOSAGE
     Route: 058
     Dates: start: 2015
  2. INSULIN NOS [Concomitant]
     Active Substance: INSULIN NOS
     Indication: Type 2 diabetes mellitus
     Dosage: DURING HOSPITALIZATION
     Route: 058

REACTIONS (1)
  - Back disorder [Not Recovered/Not Resolved]
